FAERS Safety Report 21873024 (Version 1)
Quarter: 2023Q1

REPORT INFORMATION
  Report Type: Spontaneous
  Country: JP (occurrence: JP)
  Receive Date: 20230117
  Receipt Date: 20230117
  Transmission Date: 20230418
  Serious: Yes (Death, Other)
  Sender: FDA-Public Use
  Company Number: JP-GILEAD-2023-0612353

PATIENT
  Age: 78 Year
  Sex: Male

DRUGS (3)
  1. VEKLURY [Suspect]
     Active Substance: REMDESIVIR
     Indication: COVID-19 pneumonia
     Dosage: UNK
     Route: 065
  2. BARICITINIB [Concomitant]
     Active Substance: BARICITINIB
     Indication: COVID-19 pneumonia
     Dosage: UNK
  3. HEPARIN SODIUM [Concomitant]
     Active Substance: HEPARIN SODIUM
     Indication: COVID-19 pneumonia
     Dosage: UNK

REACTIONS (4)
  - Acute respiratory distress syndrome [Fatal]
  - Death [Fatal]
  - Diffuse alveolar damage [Fatal]
  - Pulmonary fibrosis [Fatal]
